FAERS Safety Report 9026714 (Version 1)
Quarter: 2013Q1

REPORT INFORMATION
  Report Type: Spontaneous
  Country: US (occurrence: None)
  Receive Date: 20121228
  Receipt Date: 20121228
  Transmission Date: 20140127
  Serious: Yes (Other)
  Sender: FDA-Public Use
  Company Number: 12-029

PATIENT
  Sex: Female

DRUGS (8)
  1. RYEGRASS, PERENNIAL (LOLIUM PERENNE) 30 ML [Suspect]
     Dates: start: 20121203, end: 20121211
  2. ALLERGENIC EXTRACT- TIMOTHY PHLEUM PROTENSE [Suspect]
  3. BERMUDA GRASS (CYNODON DACTYLON) 30 ML [Suspect]
  4. BAHIA GRASS (PASPALUM NOTATUM) 10 ML [Suspect]
  5. JOHNSON GRASS (SORGHUM HALEPENSE) 30 ML [Suspect]
  6. GS DOCK-SORREL MIX 30 ML [Suspect]
  7. JOHNSON GRASS SMUT (SPORISORIUM CRUENTUM) 10 ML [Suspect]
  8. ALTERNARIA ALTERNATA 30 ML [Suspect]

REACTIONS (4)
  - Local reaction [None]
  - Anaphylactic reaction [None]
  - Chest discomfort [None]
  - Rash [None]
